FAERS Safety Report 13376630 (Version 1)
Quarter: 2017Q1

REPORT INFORMATION
  Report Type: Spontaneous
  Country: US (occurrence: US)
  Receive Date: 20170328
  Receipt Date: 20170328
  Transmission Date: 20170429
  Serious: No
  Sender: FDA-Public Use
  Company Number: US-009507513-1703USA008811

PATIENT
  Age: 69 Year
  Sex: Female
  Weight: 57.6 kg

DRUGS (4)
  1. KEYTRUDA [Suspect]
     Active Substance: PEMBROLIZUMAB
     Indication: NEUROENDOCRINE CARCINOMA OF THE SKIN
     Dosage: EVERY 3 WEEKS
     Dates: start: 20170309
  2. VITAMIN D [Concomitant]
     Active Substance: CHOLECALCIFEROL
     Dosage: UNK
  3. ADVIL [Concomitant]
     Active Substance: IBUPROFEN
     Dosage: UNK
  4. ASPIRIN. [Concomitant]
     Active Substance: ASPIRIN
     Dosage: UNK
     Route: 048

REACTIONS (4)
  - Product use issue [Unknown]
  - Pain [Unknown]
  - Dyspnoea [Unknown]
  - Hypoaesthesia [Unknown]

NARRATIVE: CASE EVENT DATE: 201703
